FAERS Safety Report 12784620 (Version 1)
Quarter: 2016Q3

REPORT INFORMATION
  Report Type: Spontaneous
  Country: DK (occurrence: DK)
  Receive Date: 20160927
  Receipt Date: 20160927
  Transmission Date: 20161109
  Serious: Yes (Other)
  Sender: FDA-Public Use
  Company Number: PHHY2016DK130000

PATIENT
  Sex: Female

DRUGS (3)
  1. MIRTAZAPINE. [Concomitant]
     Active Substance: MIRTAZAPINE
     Indication: DEPRESSION
     Route: 048
     Dates: start: 20110418, end: 201405
  2. VENLAFAXINE [Suspect]
     Active Substance: VENLAFAXINE HYDROCHLORIDE
     Indication: DEPRESSION
     Dosage: DOSERING VARIERENDE
     Route: 048
     Dates: start: 200405, end: 20140504
  3. LAMICTAL [Concomitant]
     Active Substance: LAMOTRIGINE
     Indication: MENTAL DISORDER
     Dosage: 25 MG, UNK
     Route: 065
     Dates: start: 2004, end: 201309

REACTIONS (17)
  - Tooth fracture [Recovered/Resolved]
  - Polyneuropathy [Unknown]
  - Muscular weakness [Recovered/Resolved]
  - Dental prosthesis placement [Unknown]
  - Lacrimation increased [Unknown]
  - Balance disorder [Unknown]
  - Pain [Unknown]
  - Hypoaesthesia [Unknown]
  - Tooth extraction [Unknown]
  - Visual acuity reduced [Unknown]
  - Restless legs syndrome [Recovered/Resolved]
  - Dry mouth [Unknown]
  - Tremor [Recovered/Resolved]
  - Paraesthesia [Unknown]
  - Vitamin B12 deficiency [Unknown]
  - Vision blurred [Unknown]
  - Dental caries [Unknown]

NARRATIVE: CASE EVENT DATE: 2006
